FAERS Safety Report 12560164 (Version 1)
Quarter: 2016Q3

REPORT INFORMATION
  Report Type: Spontaneous
  Country: US (occurrence: US)
  Receive Date: 20160715
  Receipt Date: 20160715
  Transmission Date: 20161109
  Serious: No
  Sender: FDA-Public Use
  Company Number: US-JNJFOC-20160502499

PATIENT
  Sex: Female
  Weight: 77.11 kg

DRUGS (3)
  1. LEVOTHYROXINE. [Concomitant]
     Active Substance: LEVOTHYROXINE
     Indication: HYPERTHYROIDISM
     Route: 065
  2. MENS ROGAINE EXTRA STRENGTH [Suspect]
     Active Substance: MINOXIDIL
     Indication: ALOPECIA
     Route: 061
  3. MENS ROGAINE EXTRA STRENGTH [Suspect]
     Active Substance: MINOXIDIL
     Indication: ALOPECIA
     Route: 061
     Dates: start: 20151205

REACTIONS (7)
  - Drug ineffective [Unknown]
  - Product use issue [Recovered/Resolved]
  - Pruritus [Recovered/Resolved]
  - Alopecia [Recovered/Resolved]
  - Off label use [Recovered/Resolved]
  - Product quality issue [Unknown]
  - Skin irritation [Recovered/Resolved]
